FAERS Safety Report 14355615 (Version 3)
Quarter: 2018Q2

REPORT INFORMATION
  Report Type: Spontaneous
  Country: US (occurrence: US)
  Receive Date: 20180105
  Receipt Date: 20180606
  Transmission Date: 20180711
  Serious: No
  Sender: FDA-Public Use
  Company Number: US-PFIZER INC-2018003671

PATIENT
  Age: 78 Year
  Sex: Female
  Weight: 61.22 kg

DRUGS (1)
  1. XELJANZ [Suspect]
     Active Substance: TOFACITINIB CITRATE
     Indication: ARTHRITIS
     Dosage: 5 MG, 2X/DAY, (IN THE MORNING AND IN THE EVENING)

REACTIONS (3)
  - Malaise [Unknown]
  - Drug effect incomplete [Not Recovered/Not Resolved]
  - Faeces hard [Not Recovered/Not Resolved]
